FAERS Safety Report 7577403-X (Version None)
Quarter: 2011Q2

REPORT INFORMATION
  Report Type: 
  Country: None (occurrence: None)
  Receive Date: 20110628
  Receipt Date: 20110517
  Transmission Date: 20111010
  Serious: No
  Sender: FDA-Public Use
  Company Number: US-BAYER-2011-044043

PATIENT
  Age: 81 Year
  Sex: Female
  Weight: 59 kg

DRUGS (4)
  1. ALEVE (CAPLET) [Suspect]
     Indication: BACK PAIN
     Dosage: DAILY DOSE 880 MG
     Route: 048
     Dates: start: 20110510
  2. NEXIUM [Concomitant]
  3. SYNTHROID [Concomitant]
  4. PLETAL [Concomitant]

REACTIONS (1)
  - DRUG INEFFECTIVE [None]
